FAERS Safety Report 6183339-1 (Version None)
Quarter: 2009Q2

REPORT INFORMATION
  Report Type: 
  Country: None (occurrence: None)
  Receive Date: 20090507
  Receipt Date: 20090427
  Transmission Date: 20091009
  Serious: Yes (Life-Threatening, Hospitalization)
  Sender: FDA-Public Use
  Company Number: CN-TYCO HEALTHCARE/MALLINCKRODT-T200900936

PATIENT
  Age: 70 Year
  Sex: Female

DRUGS (1)
  1. OPTIRAY 300 [Suspect]
     Indication: COMPUTERISED TOMOGRAM
     Dosage: 100 ML, SINGLE
     Route: 042
     Dates: start: 20090420, end: 20090420

REACTIONS (5)
  - ASTHENIA [None]
  - CARDIAC ARREST [None]
  - NAUSEA [None]
  - RENAL FAILURE [None]
  - VOMITING [None]
